FAERS Safety Report 16970795 (Version 1)
Quarter: 2019Q4

REPORT INFORMATION
  Report Type: Report from Study
  Country: US (occurrence: US)
  Receive Date: 20191029
  Receipt Date: 20191029
  Transmission Date: 20200122
  Serious: Yes (Hospitalization)
  Sender: FDA-Public Use
  Company Number: US-PFIZER INC-2018289405

PATIENT
  Age: 76 Year
  Sex: Female

DRUGS (2)
  1. IBRANCE [Suspect]
     Active Substance: PALBOCICLIB
     Dosage: 100 MG, UNK
  2. IBRANCE [Suspect]
     Active Substance: PALBOCICLIB
     Indication: BREAST CANCER
     Dosage: 75 MG, CYCLIC, [DAILY, 21 DAYS ON/7 DAYS OFF]
     Route: 048
     Dates: start: 20180716

REACTIONS (3)
  - Product dose omission [Unknown]
  - Malaise [Unknown]
  - Constipation [Unknown]

NARRATIVE: CASE EVENT DATE: 2018
